FAERS Safety Report 23892728 (Version 2)
Quarter: 2024Q3

REPORT INFORMATION
  Report Type: Spontaneous
  Country: CH (occurrence: CH)
  Receive Date: 20240524
  Receipt Date: 20240726
  Transmission Date: 20241016
  Serious: Yes (Hospitalization)
  Sender: TEVA
  Company Number: CH-TEVA-VS-3201093

PATIENT
  Sex: Female

DRUGS (2)
  1. PACLITAXEL [Suspect]
     Active Substance: PACLITAXEL
     Indication: Breast cancer
     Dosage: DOSAGE: 6 MG/ML FORM STRENGTH: LIQUID 30MG/5ML, CONCENTRATION :0.49MG/ML  ,  1ST ADMINISTRATION
     Route: 065
     Dates: start: 20240409
  2. PACLITAXEL [Suspect]
     Active Substance: PACLITAXEL
     Indication: Breast cancer
     Dosage: DOSAGE: 6 MG/ML FORM STRENGTH: LIQUID 30MG/5ML,,  CONCENTRATION :0.49MG/ML , 2 ND ADMINISTRATION
     Route: 065
     Dates: start: 20240417

REACTIONS (1)
  - Anaphylactic reaction [Recovered/Resolved]

NARRATIVE: CASE EVENT DATE: 20240417
